FAERS Safety Report 10010663 (Version 1)
Quarter: 2014Q1

REPORT INFORMATION
  Report Type: Spontaneous
  Country: US (occurrence: US)
  Receive Date: 20140314
  Receipt Date: 20140314
  Transmission Date: 20141002
  Serious: No
  Sender: FDA-Public Use
  Company Number: US-DRREDDYS-USA/USA/13/0028259

PATIENT
  Age: 43 Year
  Sex: Male
  Weight: 78.09 kg

DRUGS (2)
  1. CETIRIZINE 10 MG [Suspect]
     Indication: SEASONAL ALLERGY
     Dosage: 10 MG DAILY
     Route: 048
  2. ATORVASTATIN TABLETS 10MG, 20 MG + 40 MG (091650) [Concomitant]
     Indication: BLOOD CHOLESTEROL INCREASED
     Route: 065

REACTIONS (2)
  - Drug ineffective [Unknown]
  - Product quality issue [Unknown]
